FAERS Safety Report 5267312-3 (Version None)
Quarter: 2007Q1

REPORT INFORMATION
  Report Type: 
  Country: None (occurrence: None)
  Receive Date: 20070316
  Receipt Date: 20070306
  Transmission Date: 20070707
  Serious: Yes (Death, Other)
  Sender: FDA-Public Use
  Company Number: FR-GLAXOSMITHKLINE-B0461841A

PATIENT
  Age: 75 Year

DRUGS (1)
  1. ARIXTRA [Suspect]
     Indication: ATRIAL FIBRILLATION
     Route: 058
     Dates: start: 20070101, end: 20070101

REACTIONS (2)
  - OFF LABEL USE [None]
  - SUBDURAL HAEMATOMA [None]
